FAERS Safety Report 15541030 (Version 1)
Quarter: 2018Q4

REPORT INFORMATION
  Report Type: Spontaneous
  Country: US (occurrence: US)
  Receive Date: 20181016
  Receipt Date: 20181016
  Transmission Date: 20190205
  Serious: Yes (Death, Hospitalization)
  Sender: FDA-Public Use
  Company Number: None

PATIENT
  Age: 17 Year
  Sex: Male
  Weight: 39.1 kg

DRUGS (7)
  1. GLEEVEC [Suspect]
     Active Substance: IMATINIB MESYLATE
     Dates: end: 20180823
  2. DEXAMETHASONE. [Suspect]
     Active Substance: DEXAMETHASONE
     Dates: end: 20180823
  3. ZINECARD [Suspect]
     Active Substance: DEXRAZOXANE HYDROCHLORIDE
     Dates: end: 20180824
  4. VINCRISTINE SULFATE. [Suspect]
     Active Substance: VINCRISTINE SULFATE
     Dates: end: 20180824
  5. ONCASPAR [Suspect]
     Active Substance: PEGASPARGASE
     Dates: end: 20180820
  6. DOXORUBICIN HYDROCHLORIDE. [Suspect]
     Active Substance: DOXORUBICIN HYDROCHLORIDE
     Dates: end: 20180824
  7. METHOTREXATE. [Suspect]
     Active Substance: METHOTREXATE
     Dates: end: 20180816

REACTIONS (22)
  - Clostridium test positive [None]
  - Metabolic acidosis [None]
  - Respiratory acidosis [None]
  - Dizziness [None]
  - Pancytopenia [None]
  - Blood product transfusion dependent [None]
  - Septic shock [None]
  - Haemophagocytic lymphohistiocytosis [None]
  - Pseudomonas test positive [None]
  - Adenovirus test positive [None]
  - Pneumomediastinum [None]
  - Pneumonia [None]
  - Jaundice [None]
  - Subcutaneous emphysema [None]
  - Renal failure [None]
  - Unresponsive to stimuli [None]
  - Fall [None]
  - Respiratory failure [None]
  - Diarrhoea [None]
  - Pleural effusion [None]
  - Hepatic function abnormal [None]
  - Blood lactic acid increased [None]

NARRATIVE: CASE EVENT DATE: 20180830
